FAERS Safety Report 7536398-5 (Version None)
Quarter: 2011Q2

REPORT INFORMATION
  Report Type: 
  Country: None (occurrence: None)
  Receive Date: 20110608
  Receipt Date: 20110608
  Transmission Date: 20111010
  Serious: Yes (Other)
  Sender: FDA-Public Use
  Company Number: None

PATIENT
  Age: 58 Year
  Sex: Male
  Weight: 68.0396 kg

DRUGS (11)
  1. BYSTOLIC [Concomitant]
  2. DETROL [Concomitant]
  3. ERTAPENEM 1G IV MERCK [Suspect]
     Indication: URINARY TRACT INFECTION
     Dosage: 1G IV EVERY 24 HOURS
     Route: 042
     Dates: start: 20110527, end: 20110527
  4. FLOMAX [Concomitant]
  5. PLAVIX [Concomitant]
  6. LANTUS [Concomitant]
  7. NOVOLOG [Concomitant]
  8. LIPITOR [Concomitant]
  9. CYMBALTA [Concomitant]
  10. AMLODIPINE [Concomitant]
  11. TOPAMAX [Concomitant]

REACTIONS (1)
  - CONVULSION [None]
